FAERS Safety Report 9512401 (Version 1)
Quarter: 2013Q1

REPORT INFORMATION
  Report Type: Spontaneous
  Country: US (occurrence: None)
  Receive Date: 20130305
  Receipt Date: 20130305
  Transmission Date: 20140127
  Serious: Yes (Other)
  Sender: FDA-Public Use
  Company Number: 163-21880-12052464

PATIENT
  Age: 51 Year
  Sex: Female
  Weight: 56.7 kg

DRUGS (17)
  1. REVLIMID [Suspect]
     Indication: PLASMA CELL MYELOMA
     Dosage: 10 MG, 28 IN 28 D, PO
     Route: 048
     Dates: start: 20100518
  2. AREDIA (PAMIDRONATE DISODIUM) (UNKNOWN) [Concomitant]
  3. ASPIRIN (ACETYLSALICYLIC ACID) (UNKNOWN)? [Concomitant]
  4. CALCIUM WITH VITAMIN D (CLCIUM WITH VITAMIN D) (UNKNOWN) [Concomitant]
  5. CARISOPRODOL (CARISOPRODOL) (UNKNOWN) [Concomitant]
  6. DALMANE (FLURAZEPAM HYDROCHLORIDE) (UKNOWN) [Concomitant]
  7. LAMICTAL (LAMOTRIGINE) (UNKNOWN) [Concomitant]
  8. LEVOTHROXINE (LEVOTHYROXINE SODIUM) (UNKNOWN) [Concomitant]
  9. METHADONE (METHADONE) (UNKNOWN) (METHADONE) [Concomitant]
  10. MORPHINE (MORPHINE) (UNKNOWN) (MORPHINE) [Concomitant]
  11. REMERON (MIRTAZAPINE) (UNKNOWN) [Concomitant]
  12. VALREX (VALACICLOVIR HYDROCHLORIDE) (UNKNOWN) [Concomitant]
  13. VITAMIN D (ERGOCALCIFEROL) (UNKNOWN) [Concomitant]
  14. XANAX (ALPRAZOLAM) (UNKNOWN) [Concomitant]
  15. ZOMETA (ZOLEDRONIC ACID) (UNKNOWN) [Concomitant]
  16. MULTIVITAMINS (MULTIVITAMINS) (UNKNOWN) [Concomitant]
  17. COMPAZINE (PROCHLORPERAZINE EDISYLATE) (UNKNOWN) [Concomitant]

REACTIONS (2)
  - Laboratory test abnormal [None]
  - Neutropenia [None]
